FAERS Safety Report 23318314 (Version 5)
Quarter: 2024Q2

REPORT INFORMATION
  Report Type: Report from Study
  Country: US (occurrence: US)
  Receive Date: 20231220
  Receipt Date: 20240401
  Transmission Date: 20240716
  Serious: Yes (Life-Threatening, Hospitalization, Other)
  Sender: FDA-Public Use
  Company Number: US-ABBVIE-5546395

PATIENT
  Sex: Male
  Weight: 88 kg

DRUGS (2)
  1. HUMIRA [Suspect]
     Active Substance: ADALIMUMAB
     Indication: Crohn^s disease
     Dosage: CITRATE FREE?START DATE: 2023
     Route: 058
     Dates: end: 202311
  2. HUMIRA [Suspect]
     Active Substance: ADALIMUMAB
     Dosage: CITRATE FREE?LAST ADMIN DATE : 2023
     Route: 058
     Dates: start: 2023

REACTIONS (14)
  - Hiccups [Unknown]
  - Asthma [Unknown]
  - Hypersensitivity [Unknown]
  - Tracheostomy [Unknown]
  - Upper respiratory tract infection [Recovered/Resolved]
  - Bronchial disorder [Recovered/Resolved]
  - Upper respiratory tract infection [Recovered/Resolved]
  - Lung disorder [Unknown]
  - Aphasia [Unknown]
  - Bronchiectasis [Unknown]
  - Neurogenic bladder [Recovered/Resolved]
  - Pneumonia [Recovered/Resolved]
  - Tracheomalacia [Unknown]
  - Allergic oedema [Unknown]

NARRATIVE: CASE EVENT DATE: 20230101
